FAERS Safety Report 6233207-1 (Version None)
Quarter: 2009Q2

REPORT INFORMATION
  Report Type: 
  Country: None (occurrence: None)
  Receive Date: 20090617
  Receipt Date: 20090608
  Transmission Date: 20091009
  Serious: Yes (Other)
  Sender: FDA-Public Use
  Company Number: PHEH2009US05878

PATIENT
  Age: 70 Year
  Sex: Female

DRUGS (1)
  1. TEKTURNA HCT [Suspect]
     Indication: HYPERTENSION
     Dosage: 300/12.5 MG DAILY
     Dates: start: 20081101, end: 20090608

REACTIONS (1)
  - HYPONATRAEMIA [None]
